FAERS Safety Report 7493809-1 (Version None)
Quarter: 2011Q2

REPORT INFORMATION
  Report Type: 
  Country: None (occurrence: None)
  Receive Date: 20110520
  Receipt Date: 20110512
  Transmission Date: 20111010
  Serious: Yes (Hospitalization)
  Sender: FDA-Public Use
  Company Number: FR-PFIZER INC-HQ2035524APR2002

PATIENT
  Age: 88 Year
  Sex: Female

DRUGS (6)
  1. IMOVANE [Suspect]
     Dosage: 7.5 MG, DAILY
     Route: 048
  2. FELODIPINE [Suspect]
     Dosage: 1 DF, 1X/DAY
     Route: 048
     Dates: start: 19981017, end: 20020224
  3. PANTOPRAZOLE [Suspect]
     Dosage: 40 MG, 1X/DAY
     Route: 048
     Dates: start: 20011012, end: 20020225
  4. FELDENE [Suspect]
     Route: 048
  5. ACETAMINOPHEN [Suspect]
     Dosage: 1 TABLET, (FREQUENCY UNKNOWN)
     Route: 048
  6. GAVISCON [Suspect]
     Dosage: UNK V4X DAILY
     Route: 048

REACTIONS (5)
  - HYPONATRAEMIA [None]
  - LOSS OF CONSCIOUSNESS [None]
  - PYELONEPHRITIS [None]
  - TONIC CONVULSION [None]
  - URINARY TRACT INFECTION [None]
